FAERS Safety Report 23895501 (Version 3)
Quarter: 2024Q2

REPORT INFORMATION
  Report Type: Spontaneous
  Country: CN (occurrence: CN)
  Receive Date: 20240524
  Receipt Date: 20240613
  Transmission Date: 20240716
  Serious: Yes (Other)
  Sender: FDA-Public Use
  Company Number: CN-SUN PHARMACEUTICAL INDUSTRIES LTD-2024R1-447391

PATIENT
  Sex: Female
  Weight: 4.4 kg

DRUGS (5)
  1. CAPTOPRIL [Suspect]
     Active Substance: CAPTOPRIL
     Indication: Pulmonary hypertension
     Dosage: 12.5 MILLIGRAM
     Route: 065
  2. HYDROCHLOROTHIAZIDE [Suspect]
     Active Substance: HYDROCHLOROTHIAZIDE
     Indication: Pulmonary hypertension
     Dosage: 2.5 MILLIGRAM
     Route: 048
  3. SPIRONOLACTONE [Suspect]
     Active Substance: SPIRONOLACTONE
     Indication: Pulmonary hypertension
     Dosage: 4 MILLIGRAM
     Route: 048
  4. SPIRONOLACTONE [Suspect]
     Active Substance: SPIRONOLACTONE
     Dosage: 2 MILLIGRAM
     Route: 048
  5. DIGOXIN [Interacting]
     Active Substance: DIGOXIN
     Indication: Pulmonary hypertension
     Dosage: 0.9 ML (0.045 MG), BID
     Route: 048

REACTIONS (4)
  - Drug interaction [Unknown]
  - Toxicity to various agents [Unknown]
  - Overdose [Unknown]
  - Drug level increased [Unknown]
